FAERS Safety Report 16721104 (Version 1)
Quarter: 2019Q3

REPORT INFORMATION
  Report Type: Spontaneous
  Country: US (occurrence: US)
  Receive Date: 20190703
  Receipt Date: 20190703
  Transmission Date: 20191005
  Serious: No
  Sender: FDA-Public Use
  Company Number: None

PATIENT
  Age: 50 Year
  Sex: Male

DRUGS (1)
  1. TALTZ [Suspect]
     Active Substance: IXEKIZUMAB
     Dosage: ?          OTHER
     Route: 058
     Dates: start: 20170210, end: 20190401

REACTIONS (2)
  - Treatment failure [None]
  - Drug ineffective [None]

NARRATIVE: CASE EVENT DATE: 20190520
